FAERS Safety Report 11854365 (Version 2)
Quarter: 2016Q2

REPORT INFORMATION
  Report Type: Report from Study
  Country: US (occurrence: US)
  Receive Date: 20151221
  Receipt Date: 20160627
  Transmission Date: 20160815
  Serious: Yes (Hospitalization, Other)
  Sender: FDA-Public Use
  Company Number: US-AMGEN-USASL2015133800

PATIENT
  Age: 39 Year
  Sex: Female

DRUGS (2)
  1. ENBREL [Suspect]
     Active Substance: ETANERCEPT
     Indication: RHEUMATOID ARTHRITIS
     Dosage: 50 MG, QWK
     Route: 065
     Dates: start: 20150914, end: 201603
  2. METHOTREXATE [Concomitant]
     Active Substance: METHOTREXATE
     Dosage: UNK

REACTIONS (7)
  - Multiple sclerosis [Unknown]
  - Diarrhoea [Unknown]
  - Hangover [Unknown]
  - Headache [Unknown]
  - Fatigue [Unknown]
  - Injection site pain [Unknown]
  - Rotator cuff syndrome [Unknown]

NARRATIVE: CASE EVENT DATE: 2015
